FAERS Safety Report 8268622-8 (Version None)
Quarter: 2012Q1

REPORT INFORMATION
  Report Type: 
  Country: None (occurrence: None)
  Receive Date: 20120327
  Receipt Date: 20091208
  Transmission Date: 20120608
  Serious: Yes (Other)
  Sender: FDA-Public Use
  Company Number: PHEH2009US13493

PATIENT
  Sex: Male

DRUGS (1)
  1. GLEEVEC [Suspect]
     Dosage: 400 MG,QD ORAL
     Route: 048
     Dates: start: 19990101

REACTIONS (3)
  - MUSCLE SPASMS [None]
  - GAIT DISTURBANCE [None]
  - BACK PAIN [None]
